FAERS Safety Report 4681641-3 (Version None)
Quarter: 2005Q2

REPORT INFORMATION
  Report Type: 
  Country: None (occurrence: None)
  Receive Date: 20050603
  Receipt Date: 20050525
  Transmission Date: 20051028
  Serious: Yes (Life-Threatening)
  Sender: FDA-Public Use
  Company Number: US-MERCK-0505USA02985

PATIENT
  Age: 74 Year
  Sex: Female

DRUGS (7)
  1. SINGULAIR [Suspect]
     Indication: HYPERSENSITIVITY
     Route: 048
     Dates: start: 19980201
  2. SINGULAIR [Suspect]
     Route: 048
     Dates: start: 20050504, end: 20050501
  3. LISINOPRIL [Concomitant]
     Route: 065
  4. COREG [Concomitant]
     Route: 065
  5. CRESTOR [Concomitant]
     Route: 065
  6. BUMEX [Concomitant]
     Route: 065
  7. [THERAPY UNSPECIFIED] [Concomitant]
     Route: 065

REACTIONS (1)
  - DRUG INEFFECTIVE [None]
